FAERS Safety Report 9129169 (Version 1)
Quarter: 2013Q1

REPORT INFORMATION
  Report Type: Report from Study
  Country: IT (occurrence: IT)
  Receive Date: 20130125
  Receipt Date: 20130125
  Transmission Date: 20140127
  Serious: Yes (Other)
  Sender: FDA-Public Use
  Company Number: IT-ROCHE-1182046

PATIENT
  Age: 52 Year
  Sex: Male

DRUGS (5)
  1. VEMURAFENIB [Suspect]
     Indication: METASTATIC MALIGNANT MELANOMA
     Route: 048
  2. OXYCONTIN [Concomitant]
     Indication: PAIN
     Route: 065
  3. ORAMORPH [Concomitant]
     Indication: PAIN
     Route: 042
  4. LYRICA [Concomitant]
     Indication: PAIN
     Route: 065
  5. BRUFEN [Concomitant]
     Indication: INFLAMMATION
     Route: 065

REACTIONS (4)
  - Diarrhoea [Recovered/Resolved]
  - Vomiting [Recovered/Resolved]
  - Syncope [Recovered/Resolved]
  - Influenza [Recovered/Resolved]
